FAERS Safety Report 4398687-5 (Version None)
Quarter: 2004Q3

REPORT INFORMATION
  Report Type: 
  Country: None (occurrence: None)
  Receive Date: 20040712
  Receipt Date: 20040630
  Transmission Date: 20050211
  Serious: No
  Sender: FDA-Public Use
  Company Number: 04P-028-0265718-00

PATIENT
  Sex: 0

DRUGS (2)
  1. DEPAKOTE [Suspect]
  2. CYPROTERONE ACETATE [Concomitant]

REACTIONS (1)
  - CEREBROVASCULAR ACCIDENT [None]
